FAERS Safety Report 24573478 (Version 1)
Quarter: 2024Q4

REPORT INFORMATION
  Report Type: Spontaneous
  Country: IT (occurrence: IT)
  Receive Date: 20241102
  Receipt Date: 20241102
  Transmission Date: 20250115
  Serious: Yes (Death)
  Sender: GENMAB
  Company Number: IT-ABBVIE-5983428

PATIENT
  Age: 80 Year
  Sex: Female

DRUGS (1)
  1. EPCORITAMAB [Suspect]
     Active Substance: EPCORITAMAB
     Indication: Product used for unknown indication
     Dosage: UNK
     Route: 058

REACTIONS (2)
  - Condition aggravated [Fatal]
  - Pneumonia [Fatal]
